FAERS Safety Report 4457228-4 (Version None)
Quarter: 2004Q3

REPORT INFORMATION
  Report Type: 
  Country: None (occurrence: None)
  Receive Date: 20040922
  Receipt Date: 20040913
  Transmission Date: 20050211
  Serious: Yes (Other)
  Sender: FDA-Public Use
  Company Number: 2004208043US

PATIENT
  Age: 17 Year
  Sex: Female
  Weight: 64.4 kg

DRUGS (1)
  1. DEPO-PROVERA [Suspect]
     Indication: CONTRACEPTION
     Dosage: 150 MG, SINGLE, INTRAMUSCULAR
     Route: 030
     Dates: start: 20040331, end: 20040331

REACTIONS (3)
  - ABORTION SPONTANEOUS [None]
  - BLIGHTED OVUM [None]
  - DRUG EXPOSURE DURING PREGNANCY [None]
